FAERS Safety Report 5005436-6 (Version None)
Quarter: 2006Q2

REPORT INFORMATION
  Report Type: 
  Country: None (occurrence: None)
  Receive Date: 20060518
  Receipt Date: 20050603
  Transmission Date: 20061013
  Serious: Yes (Hospitalization, Disabling, Other)
  Sender: FDA-Public Use
  Company Number: US-MERCK-0506USA01010

PATIENT
  Age: 49 Year
  Sex: Male
  Weight: 102 kg

DRUGS (2)
  1. VIOXX [Suspect]
     Indication: ARTHRALGIA
     Route: 048
     Dates: start: 20001002, end: 20040901
  2. VIOXX [Suspect]
     Indication: BACK PAIN
     Route: 048
     Dates: start: 20001002, end: 20040901

REACTIONS (10)
  - ABDOMINAL PAIN [None]
  - ARTHROPATHY [None]
  - BACK DISORDER [None]
  - CARDIAC DISORDER [None]
  - CHEST PAIN [None]
  - GASTRITIS [None]
  - ISCHAEMIA [None]
  - MYOCARDIAL INFARCTION [None]
  - PNEUMOCONIOSIS [None]
  - TRANSIENT ISCHAEMIC ATTACK [None]
